FAERS Safety Report 17597821 (Version 1)
Quarter: 2020Q1

REPORT INFORMATION
  Report Type: Spontaneous
  Country: US (occurrence: US)
  Receive Date: 20200329
  Receipt Date: 20200329
  Transmission Date: 20200409
  Serious: Yes (Disabling)
  Sender: FDA-Public Use
  Company Number: None

PATIENT
  Age: 61 Year
  Sex: Male
  Weight: 86.4 kg

DRUGS (6)
  1. ORENCIA [Suspect]
     Active Substance: ABATACEPT
     Indication: RHEUMATOID ARTHRITIS
     Dosage: ?          QUANTITY:1 INJECTION(S);OTHER FREQUENCY:ONCE A WEEK;?
     Route: 030
     Dates: start: 20200227, end: 20200326
  2. INHALERS [Concomitant]
     Active Substance: UNSPECIFIED INGREDIENT
  3. DIABETES MEDS [Concomitant]
  4. HYDROXYCHLOROQUINE [Suspect]
     Active Substance: HYDROXYCHLOROQUINE
     Indication: RHEUMATOID ARTHRITIS
     Dosage: ?          QUANTITY:1 TABLET(S);?
     Route: 048
     Dates: start: 20190628, end: 20200328
  5. HEART MEDS [Concomitant]
  6. MED FOR MIGRAINES [Concomitant]

REACTIONS (3)
  - Vascular device user [None]
  - Chest discomfort [None]
  - Eye disorder [None]

NARRATIVE: CASE EVENT DATE: 20200328
